FAERS Safety Report 18362409 (Version 1)
Quarter: 2020Q4

REPORT INFORMATION
  Report Type: Report from Study
  Country: DE (occurrence: DE)
  Receive Date: 20201008
  Receipt Date: 20201008
  Transmission Date: 20210114
  Serious: Yes (Hospitalization)
  Sender: FDA-Public Use
  Company Number: DE-MYLANLABS-2020M1084864

PATIENT
  Age: 64 Year
  Sex: Female
  Weight: 55 kg

DRUGS (20)
  1. OCRELIZUMAB. [Suspect]
     Active Substance: OCRELIZUMAB
     Dosage: 600 MILLIGRAM
     Route: 042
     Dates: start: 20191017
  2. RANITIDINE. [Concomitant]
     Active Substance: RANITIDINE
     Dosage: 300 MILLIGRAM, (0.5 DAY)
     Route: 048
     Dates: start: 20190422, end: 20190424
  3. RANITIDINE. [Concomitant]
     Active Substance: RANITIDINE
     Dosage: 300 MILLIGRAM, (0.5 DAY)
     Route: 048
     Dates: start: 20190507, end: 20190509
  4. VIMPAT [Concomitant]
     Active Substance: LACOSAMIDE
     Indication: TRIGEMINAL NEURALGIA
     Dosage: 100 MILLIGRAM, QD
     Route: 048
     Dates: start: 202002, end: 202003
  5. AERIUS (DESLORATADINE) [Concomitant]
     Active Substance: DESLORATADINE
     Dosage: 5 MILLIGRAM, (0.5 DAY)
     Route: 048
     Dates: start: 20190422, end: 20190424
  6. CYTOTEC [Concomitant]
     Active Substance: MISOPROSTOL
     Indication: TRIGEMINAL NEURALGIA
     Dosage: 200 MILLIGRAM, (0.33 DAY)
     Route: 048
     Dates: start: 202003
  7. SATIVEX [Concomitant]
     Active Substance: NABIXIMOLS
     Dosage: UNK, (0.33 DAY)
     Route: 048
  8. PREDNISOLONE. [Concomitant]
     Active Substance: PREDNISOLONE
     Dosage: 100 MILLIGRAM, QD
     Route: 042
     Dates: start: 20190423
  9. PREDNISOLONE. [Concomitant]
     Active Substance: PREDNISOLONE
     Dosage: 100 MILLIGRAM, QD
     Route: 042
     Dates: start: 20190508, end: 20190508
  10. LORAZEPAM. [Suspect]
     Active Substance: LORAZEPAM
     Indication: TRIGEMINAL NEURALGIA
     Dosage: 2 MILLIGRAM, QD
     Route: 048
     Dates: start: 20200325, end: 20200325
  11. MISOPROSTOL. [Concomitant]
     Active Substance: MISOPROSTOL
     Indication: TRIGEMINAL NEURALGIA
     Dosage: 0.2 MILLIGRAM, (0.33 DAY)
  12. TAVOR EXPIDET [Concomitant]
     Active Substance: LORAZEPAM
     Indication: MUSCLE SPASTICITY
  13. VENLAFAXINE [Concomitant]
     Active Substance: VENLAFAXINE HYDROCHLORIDE
     Dosage: 37.5 MILLIGRAM, (0.5  DAY)
     Route: 048
     Dates: start: 20200418
  14. OXCARBAZEPINE. [Suspect]
     Active Substance: OXCARBAZEPINE
     Indication: ATAXIA
     Dosage: 150 MILLIGRAM, (0.25  DAY)
     Route: 048
  15. OXCARBAZEPINE. [Suspect]
     Active Substance: OXCARBAZEPINE
     Indication: TRIGEMINAL NEURALGIA
     Dosage: 1200 MILLIGRAM
     Route: 048
     Dates: start: 202003
  16. AERIUS (DESLORATADINE) [Concomitant]
     Active Substance: DESLORATADINE
     Dosage: 5 MILLIGRAM, (0.5 DAY)
     Route: 048
     Dates: start: 20190507, end: 20190509
  17. OCRELIZUMAB. [Suspect]
     Active Substance: OCRELIZUMAB
     Indication: RELAPSING MULTIPLE SCLEROSIS
     Dosage: 300 MILLIGRAM
     Route: 042
     Dates: start: 20190423, end: 20190508
  18. DEKRISTOL [Concomitant]
     Active Substance: CHOLECALCIFEROL
     Indication: PROPHYLAXIS
     Dosage: 20000 INTERNATIONAL UNIT, QW
     Route: 048
     Dates: start: 20190415
  19. TAVOR EXPIDET [Concomitant]
     Active Substance: LORAZEPAM
     Indication: PAIN
     Dosage: 1 MILLIGRAM
     Route: 048
     Dates: start: 20200326
  20. VENLAFAXINE [Concomitant]
     Active Substance: VENLAFAXINE HYDROCHLORIDE
     Dosage: 37.5 MILLIGRAM, QD
     Route: 048
     Dates: start: 20200410, end: 20200417

REACTIONS (2)
  - Trigeminal neuralgia [Unknown]
  - Ataxia [Recovered/Resolved]

NARRATIVE: CASE EVENT DATE: 20200326
